FAERS Safety Report 18876679 (Version 1)
Quarter: 2021Q1

REPORT INFORMATION
  Report Type: Other
  Country: HR (occurrence: HR)
  Receive Date: 20210211
  Receipt Date: 20210211
  Transmission Date: 20210420
  Serious: Yes (Life-Threatening)
  Sender: FDA-Public Use
  Company Number: HR-CELLTRION INC.-2021HR001662

PATIENT

DRUGS (1)
  1. REMSIMA [Suspect]
     Active Substance: INFLIXIMAB
     Indication: CROHN^S DISEASE
     Dosage: 300 MG, CYCLIC
     Route: 042
     Dates: start: 20200727, end: 20200727

REACTIONS (8)
  - Overdose [Unknown]
  - Hypotension [Recovered/Resolved]
  - Headache [Recovered/Resolved]
  - Tachycardia [Recovered/Resolved]
  - Restlessness [Recovered/Resolved]
  - Erythema [Recovered/Resolved]
  - Nausea [Recovered/Resolved]
  - Anaphylactoid reaction [Recovered/Resolved]

NARRATIVE: CASE EVENT DATE: 20200727
